FAERS Safety Report 9289400 (Version 2)
Quarter: 2013Q2

REPORT INFORMATION
  Report Type: Spontaneous
  Country: US (occurrence: US)
  Receive Date: 20130514
  Receipt Date: 20130521
  Transmission Date: 20140414
  Serious: Yes (Hospitalization)
  Sender: FDA-Public Use
  Company Number: US-GILEAD-2013-0074431

PATIENT
  Age: 69 Year
  Sex: Female

DRUGS (3)
  1. LETAIRIS [Suspect]
     Indication: PULMONARY ARTERIAL HYPERTENSION
     Dosage: 5 MG, QD
     Dates: start: 20120927
  2. ADCIRCA [Concomitant]
  3. REMODULIN [Concomitant]

REACTIONS (5)
  - Hypotension [Unknown]
  - Syncope [Unknown]
  - Facial bones fracture [Unknown]
  - Loss of consciousness [Unknown]
  - Malaise [Unknown]
